FAERS Safety Report 5114433-1 (Version None)
Quarter: 2006Q3

REPORT INFORMATION
  Report Type: 
  Country: None (occurrence: None)
  Receive Date: 20060731
  Receipt Date: 20060530
  Transmission Date: 20061208
  Serious: No
  Sender: FDA-Public Use
  Company Number: 2006PV014676

PATIENT
  Age: 63 Year
  Sex: Male
  Weight: 102.5129 kg

DRUGS (11)
  1. BYETTA [Suspect]
     Indication: DIABETES MELLITUS NON-INSULIN-DEPENDENT
     Dosage: SEE IMAGE
     Route: 058
     Dates: start: 20060511, end: 20060609
  2. BYETTA [Suspect]
     Indication: DIABETES MELLITUS NON-INSULIN-DEPENDENT
     Dosage: SEE IMAGE
     Route: 058
     Dates: start: 20060610
  3. BYETTA [Suspect]
  4. LANTUS [Concomitant]
  5. GLUCOPHAGE [Concomitant]
  6. GLYBURIDE [Concomitant]
  7. ACTOS [Concomitant]
  8. GLIPIZIDE [Concomitant]
  9. GEMFIBROZIL [Concomitant]
  10. LISINOPRIL [Concomitant]
  11. TOPROL-XL [Concomitant]

REACTIONS (4)
  - BLOOD GLUCOSE INCREASED [None]
  - DECREASED APPETITE [None]
  - DRUG EFFECT DECREASED [None]
  - THERAPEUTIC RESPONSE UNEXPECTED [None]
